FAERS Safety Report 15671532 (Version 4)
Quarter: 2019Q3

REPORT INFORMATION
  Report Type: Report from Study
  Country: US (occurrence: US)
  Receive Date: 20181129
  Receipt Date: 20190812
  Transmission Date: 20191004
  Serious: Yes (Other)
  Sender: FDA-Public Use
  Company Number: US-TESARO, INC-US-2018TSO04345

PATIENT
  Sex: Female

DRUGS (8)
  1. ZEJULA [Suspect]
     Active Substance: NIRAPARIB
     Dosage: 100 MG PER DAY
     Route: 048
     Dates: start: 20180822
  2. ZEJULA [Suspect]
     Active Substance: NIRAPARIB
     Dosage: 100 MG, 1 CAPSULE EVERY DAY
     Route: 048
  3. ZEJULA [Suspect]
     Active Substance: NIRAPARIB
     Dosage: 100 MG, ON SUNDAY AND THURSDAY IN THE AM
     Dates: start: 20180920
  4. TAXOL [Suspect]
     Active Substance: PACLITAXEL
     Dosage: 100 MG
     Route: 048
     Dates: start: 201808
  5. ZEJULA [Suspect]
     Active Substance: NIRAPARIB
     Indication: OVARIAN CANCER
     Dosage: 300 MG, QD
     Route: 048
     Dates: start: 20180810, end: 201808
  6. ZEJULA [Suspect]
     Active Substance: NIRAPARIB
     Dosage: 100MG EVERY THURSDAY AND SUNDAY
     Route: 048
     Dates: end: 201907
  7. TAXOL [Suspect]
     Active Substance: PACLITAXEL
     Indication: PRODUCT USED FOR UNKNOWN INDICATION
     Dosage: 300 MG, QD
     Route: 048
     Dates: start: 20180810
  8. TAXOL [Suspect]
     Active Substance: PACLITAXEL
     Dosage: 100 MG SUNDAY AND THURSDAY
     Dates: start: 20180920

REACTIONS (8)
  - Renal failure [Recovering/Resolving]
  - Platelet count decreased [Unknown]
  - Inappropriate schedule of product administration [Unknown]
  - Toxicity to various agents [Unknown]
  - Contusion [Unknown]
  - Rash [Unknown]
  - Recurrent cancer [Unknown]
  - Sleep disorder [Recovered/Resolved]

NARRATIVE: CASE EVENT DATE: 2018
